FAERS Safety Report 4469176-4 (Version None)
Quarter: 2004Q4

REPORT INFORMATION
  Report Type: 
  Country: None (occurrence: None)
  Receive Date: 20041005
  Receipt Date: 20040922
  Transmission Date: 20050328
  Serious: Yes (Hospitalization)
  Sender: FDA-Public Use
  Company Number: F01200402987

PATIENT
  Age: 64 Year
  Sex: Male
  Weight: 79.5 kg

DRUGS (26)
  1. OXALIPLATIN-SOLUTION- 85 MG/M2 [Suspect]
     Indication: COLORECTAL CANCER
     Dosage: 85 MG/M2 Q2W, INTRAVENOUS NOS
     Route: 042
     Dates: start: 20040331, end: 20040331
  2. FLUOROURACIL [Suspect]
     Dosage: 400 MG/M2 BOLUS THEN 2400 MG/M2 AS 46 HOURS INFUSION Q2W - INTRAVENOUS NOS
     Route: 042
     Dates: start: 20040331, end: 20040402
  3. LEUCOVORIN - SOLUTION - 350 MG [Suspect]
     Dosage: 350 MG Q2W - INTRAVENOUS NOS
     Route: 042
     Dates: start: 20040331, end: 20040331
  4. AVASTIN [Suspect]
     Dosage: 5 MG/KG OVER 30-90 MINUTES IV INFUSION ON DAY 1, Q2W - INTRAVENOUS NOS
     Route: 042
     Dates: start: 20040331, end: 20040331
  5. TAMSULOSIN HYDROCHLORIDE [Concomitant]
  6. PHENAZOPYRIDINE HCL TAB [Concomitant]
  7. OXYCONTIN [Concomitant]
  8. MORPHINE SULFATE [Concomitant]
  9. METOCLOPRAMIDE [Concomitant]
  10. CHLORPROMAZINE HYDROCHLORIDE [Concomitant]
  11. CIPROFLOXACIN [Concomitant]
  12. SODIUM CHLORIDE 0.9% [Concomitant]
  13. MILK OF MAGNESIA TAB [Concomitant]
  14. FLEET RECTAROID ENEMA [Concomitant]
  15. MAGNESIUM CITRATE [Concomitant]
  16. SENNA [Concomitant]
  17. ZOLPIDEM TARTRATE [Concomitant]
  18. TPN 1 [Concomitant]
  19. TYLOX [Concomitant]
  20. BLOOD CELLS [Concomitant]
  21. FAMOTIDINE [Concomitant]
  22. ONDANSETRON HCL [Concomitant]
  23. MORPHINE [Concomitant]
  24. DIAZEPAM [Concomitant]
  25. LEVOFLOXACIN [Concomitant]
  26. METRONIDAZOLE [Concomitant]

REACTIONS (8)
  - ALPHA HAEMOLYTIC STREPTOCOCCAL INFECTION [None]
  - CORYNEBACTERIUM INFECTION [None]
  - ENTEROCOCCAL INFECTION [None]
  - FUNGAL INFECTION [None]
  - IMPAIRED HEALING [None]
  - INTESTINAL PERFORATION [None]
  - POSTOPERATIVE INFECTION [None]
  - STAPHYLOCOCCAL INFECTION [None]
